FAERS Safety Report 4822079-5 (Version None)
Quarter: 2005Q4

REPORT INFORMATION
  Report Type: 
  Country: None (occurrence: None)
  Receive Date: 20051103
  Receipt Date: 20051017
  Transmission Date: 20060501
  Serious: Yes (Death)
  Sender: FDA-Public Use
  Company Number: GBS051018789

PATIENT
  Age: 72 Year
  Sex: Male

DRUGS (5)
  1. XIGRIS [Suspect]
     Indication: SEPSIS
     Dosage: 24 UG/KG/HR
  2. NORADRENALINE [Concomitant]
  3. FENTANYL [Concomitant]
  4. AMIODARONE [Concomitant]
  5. FRUSEMIDE [Concomitant]

REACTIONS (1)
  - DEATH [None]
